FAERS Safety Report 4747678-0 (Version None)
Quarter: 2005Q3

REPORT INFORMATION
  Report Type: 
  Country: None (occurrence: None)
  Receive Date: 20050817
  Receipt Date: 20050817
  Transmission Date: 20060218
  Serious: Yes (Hospitalization)
  Sender: FDA-Public Use
  Company Number: None

PATIENT
  Age: 80 Year
  Sex: Female
  Weight: 49 kg

DRUGS (3)
  1. RAPAMYCIN 1MG TABLETS [Suspect]
     Indication: PANCREATIC CARCINOMA
     Dosage: 3 MG PO QD
     Route: 048
  2. FUROSEMIDE [Concomitant]
  3. ALDACTONE [Concomitant]

REACTIONS (4)
  - ASCITES [None]
  - DEHYDRATION [None]
  - PAIN [None]
  - VOMITING [None]
